FAERS Safety Report 5393636-5 (Version None)
Quarter: 2007Q3

REPORT INFORMATION
  Report Type: 
  Country: None (occurrence: None)
  Receive Date: 20070723
  Receipt Date: 20061010
  Transmission Date: 20080115
  Serious: Yes (Hospitalization)
  Sender: FDA-Public Use
  Company Number: A0623103A

PATIENT
  Sex: Female

DRUGS (3)
  1. AVANDIA [Suspect]
     Route: 048
  2. LASIX [Concomitant]
  3. COREG [Concomitant]

REACTIONS (2)
  - OEDEMA [None]
  - OEDEMA PERIPHERAL [None]
